FAERS Safety Report 4461581-5 (Version None)
Quarter: 2004Q3

REPORT INFORMATION
  Report Type: 
  Country: None (occurrence: None)
  Receive Date: 20040929
  Receipt Date: 20040921
  Transmission Date: 20050211
  Serious: Yes (Other)
  Sender: FDA-Public Use
  Company Number: NSADSS2003010512

PATIENT
  Sex: Female

DRUGS (10)
  1. REMICADE [Suspect]
     Indication: CROHN'S DISEASE
     Dosage: RECEIVED ONE DOSE.
     Route: 041
  2. AZULFADINE [Concomitant]
  3. IMURAN [Concomitant]
  4. ESTROGEN PATCH [Concomitant]
  5. PROGESTIN INJ [Concomitant]
     Route: 049
  6. FOLATE [Concomitant]
  7. VICODIN [Concomitant]
  8. VICODIN [Concomitant]
  9. PROGESTIN INJ [Concomitant]
  10. NASCOBAL [Concomitant]

REACTIONS (3)
  - ANAL CANCER [None]
  - ANAL FISTULA [None]
  - SQUAMOUS CELL CARCINOMA [None]
